FAERS Safety Report 24445515 (Version 2)
Quarter: 2025Q4

REPORT INFORMATION
  Report Type: Spontaneous
  Country: US (occurrence: US)
  Receive Date: 20241016
  Receipt Date: 20251120
  Transmission Date: 20260119
  Serious: No
  Sender: SANDOZ
  Company Number: US-002147023-NVSC2024US062962

PATIENT
  Age: 58 Year
  Sex: Female

DRUGS (1)
  1. COMBIPATCH [Suspect]
     Active Substance: ESTRADIOL\NORETHINDRONE ACETATE
     Indication: Menopause
     Dosage: UNK (0.05/0.25 MG)
     Route: 062
     Dates: start: 20240314

REACTIONS (5)
  - Product residue present [Not Recovered/Not Resolved]
  - Exposure via direct contact [Not Recovered/Not Resolved]
  - Product adhesion issue [Not Recovered/Not Resolved]
  - Product administration error [Not Recovered/Not Resolved]
  - Product administered at inappropriate site [Recovered/Resolved]

NARRATIVE: CASE EVENT DATE: 20240314
